FAERS Safety Report 5024231-5 (Version None)
Quarter: 2006Q2

REPORT INFORMATION
  Report Type: 
  Country: None (occurrence: None)
  Receive Date: 20060426
  Receipt Date: 20060329
  Transmission Date: 20061013
  Serious: Yes (Other)
  Sender: FDA-Public Use
  Company Number: 2006045066

PATIENT
  Age: 71 Year
  Sex: Female

DRUGS (7)
  1. LYRICA [Suspect]
     Indication: DIABETIC NEUROPATHY
     Dosage: 150 MG (75 MG, 2 IN 1 D)
     Dates: start: 20060328
  2. CARTIA XT [Concomitant]
  3. XALATAN [Concomitant]
  4. SYNTHROID [Concomitant]
  5. PERIOSTAT [Concomitant]
  6. HUMALOG [Concomitant]
  7. LISINOPRIL [Concomitant]

REACTIONS (3)
  - DIZZINESS [None]
  - FEELING ABNORMAL [None]
  - SOMNOLENCE [None]
